FAERS Safety Report 24677784 (Version 1)
Quarter: 2024Q4

REPORT INFORMATION
  Report Type: Spontaneous
  Country: US (occurrence: US)
  Receive Date: 20241129
  Receipt Date: 20241129
  Transmission Date: 20250115
  Serious: No
  Sender: ZYDUS PHARM
  Company Number: US-CADILA HEALTHCARE LIMITED-US-ZYDUS-113647

PATIENT

DRUGS (1)
  1. BOSENTAN [Suspect]
     Active Substance: BOSENTAN
     Indication: Product used for unknown indication
     Dosage: 125 MILLIGRAM
     Route: 065

REACTIONS (4)
  - Nausea [Unknown]
  - Eating disorder [Unknown]
  - Dysphagia [Unknown]
  - Illness [Unknown]
